FAERS Safety Report 10051240 (Version 2)
Quarter: 2014Q3

REPORT INFORMATION
  Report Type: Spontaneous
  Country: IT (occurrence: IT)
  Receive Date: 20140401
  Receipt Date: 20140711
  Transmission Date: 20150326
  Serious: Yes (Other)
  Sender: FDA-Public Use
  Company Number: IT-TEVA-471811ISR

PATIENT
  Age: 68 Year
  Sex: Male

DRUGS (3)
  1. MEDROL - 16 MG COMPRESSE [Concomitant]
  2. CYCLOSPORINE. [Concomitant]
     Active Substance: CYCLOSPORINE
  3. AMOXICILLIN W/CLAVULANIC ACID [Suspect]
     Active Substance: AMOXICILLIN\CLAVULANIC ACID
     Dosage: 1 G DAILY
     Route: 048
     Dates: start: 20140314, end: 20140314

REACTIONS (4)
  - Hypothermia [Recovered/Resolved]
  - Rash [Recovered/Resolved]
  - Diarrhoea [Recovered/Resolved]
  - Tremor [Recovered/Resolved]

NARRATIVE: CASE EVENT DATE: 20140314
